FAERS Safety Report 13451571 (Version 1)
Quarter: 2017Q2

REPORT INFORMATION
  Report Type: Spontaneous
  Country: PL (occurrence: PL)
  Receive Date: 20170418
  Receipt Date: 20170418
  Transmission Date: 20170830
  Serious: Yes (Death, Other)
  Sender: FDA-Public Use
  Company Number: PL-AUROBINDO-AUR-APL-2017-32596

PATIENT
  Age: 67 Year
  Sex: Male

DRUGS (16)
  1. MORPHINE [Suspect]
     Active Substance: MORPHINE
     Dosage: ADMINISTERED EVERY 4 HOURS
     Route: 058
     Dates: start: 20120817
  2. TRIMETHOPRIM AGEPHA [Concomitant]
     Indication: MORGANELLA INFECTION
     Dosage: 5 ML, UNK
     Route: 048
     Dates: end: 20120621
  3. TRAMADOL 50MG [Suspect]
     Active Substance: TRAMADOL
     Dosage: 50?75 MG IN DROPS
     Route: 048
  4. MORPHINE [Suspect]
     Active Substance: MORPHINE
     Dosage: 5 MG, EVERY FOUR HOUR
     Route: 048
     Dates: start: 20120621
  5. INSULIN [Concomitant]
     Active Substance: INSULIN NOS
     Indication: TYPE 2 DIABETES MELLITUS
     Route: 065
  6. CODEINE [Concomitant]
     Active Substance: CODEINE
     Indication: ANALGESIC THERAPY
     Dosage: UNK
     Route: 065
  7. VALPROIC ACID. [Concomitant]
     Active Substance: VALPROIC ACID
     Indication: EPILEPSY
     Dosage: 500 MG, TWO TIMES A DAY
     Route: 065
  8. CIPROFLOXACIN. [Concomitant]
     Active Substance: CIPROFLOXACIN
     Indication: MORGANELLA INFECTION
     Dosage: 500 MG, TWO TIMES A DAY
     Route: 048
  9. DEXAMETHASONE. [Concomitant]
     Active Substance: DEXAMETHASONE
     Indication: PRODUCT USED FOR UNKNOWN INDICATION
     Dosage: 4 MG, UNK
     Route: 058
  10. TRAMADOL 50MG [Suspect]
     Active Substance: TRAMADOL
     Indication: PAIN
     Dosage: 50 MG, EVERY 6?8 HOURS
     Route: 048
  11. TRAMADOL 50MG [Suspect]
     Active Substance: TRAMADOL
     Dosage: LARGER DOZE THAN INITIALLY
     Route: 048
  12. TRAMADOL 50MG [Suspect]
     Active Substance: TRAMADOL
     Dosage: 400 MG, CONTROLLED RELEASE FORM
     Route: 048
     Dates: end: 20120807
  13. MORPHINE [Suspect]
     Active Substance: MORPHINE
     Indication: PAIN
     Dosage: 2.5 MG, 0.5 ML OF  0.5% SOLUTION
     Route: 048
     Dates: start: 20120615, end: 201206
  14. METAMIZOLE [Concomitant]
     Active Substance: METAMIZOLE
     Indication: ANALGESIC THERAPY
     Dosage: UNK
     Route: 065
  15. AKTIL                              /00852501/ [Concomitant]
     Active Substance: AMOXICILLIN\CLAVULANIC ACID
     Indication: PRODUCT USED FOR UNKNOWN INDICATION
     Dosage: 1 G, TWO TIMES A DAY
     Route: 048
  16. PAPAVERINE [Concomitant]
     Active Substance: PAPAVERINE
     Indication: ANALGESIC THERAPY
     Dosage: UNK
     Route: 065

REACTIONS (2)
  - Chills [Recovered/Resolved]
  - Hyperthermia [Recovered/Resolved]
